FAERS Safety Report 5797713-6 (Version None)
Quarter: 2008Q2

REPORT INFORMATION
  Report Type: 
  Country: None (occurrence: None)
  Receive Date: 20080630
  Receipt Date: 20080609
  Transmission Date: 20081010
  Serious: Yes (Other)
  Sender: FDA-Public Use
  Company Number: 2008-00604FE

PATIENT
  Age: 36 Year
  Sex: Female
  Weight: 59.8748 kg

DRUGS (11)
  1. MENOPUR [Suspect]
     Indication: IN VITRO FERTILISATION
     Dates: start: 20070401, end: 20070501
  2. HUMAN CHORONIC GONADOTROPIN [Suspect]
     Indication: INFERTILITY
     Dates: start: 20070501
  3. HUMAN CHORONIC GONADOTROPIN [Suspect]
     Indication: INFERTILITY
     Dates: start: 20080404
  4. PROGESTERONE [Suspect]
     Dosage: 2 ML DAILY
     Dates: start: 20070101, end: 20070701
  5. GONAL-F. MFR: NOT SPECIFIED [Suspect]
     Indication: ASSISTED FERTILISATION
     Dates: start: 20070401, end: 20070501
  6. GONAL-F. MFR: NOT SPECIFIED [Suspect]
     Indication: ASSISTED FERTILISATION
     Dates: start: 20080101
  7. LUPRON. MFR: NOT SPECIFIED [Suspect]
     Indication: IN VITRO FERTILISATION
     Dates: start: 20070401, end: 20070501
  8. ESTRACE [Suspect]
     Dosage: 1 DAILY PO
     Route: 048
     Dates: start: 20070101, end: 20070701
  9. ASPIRIN [Concomitant]
  10. LOVENOX [Concomitant]
  11. LISTEDNESS ACCORDING TO CORE SAFETY INFORMATION (MAIN EVENT): UNLISTED [Concomitant]

REACTIONS (7)
  - ABORTION SPONTANEOUS [None]
  - BREAST TENDERNESS [None]
  - COMPLICATION OF PREGNANCY [None]
  - CYST [None]
  - DRUG EXPOSURE DURING PREGNANCY [None]
  - MATERNAL DRUGS AFFECTING FOETUS [None]
  - PREGNANCY [None]
